FAERS Safety Report 10081019 (Version 4)
Quarter: 2014Q2

REPORT INFORMATION
  Report Type: Spontaneous
  Country: US (occurrence: US)
  Receive Date: 20140416
  Receipt Date: 20140605
  Transmission Date: 20141212
  Serious: No
  Sender: FDA-Public Use
  Company Number: US-PFIZER INC-2014102466

PATIENT
  Age: 68 Year
  Sex: Male
  Weight: 94.33 kg

DRUGS (6)
  1. DILANTIN [Suspect]
     Indication: EPILEPSY
     Dosage: 200 MG, 2X/DAY
     Route: 048
     Dates: start: 2008
  2. LYRICA [Suspect]
     Indication: EPILEPSY
     Dosage: 200 MG, 3X/DAY
  3. LYRICA [Suspect]
     Indication: NEUROPATHY PERIPHERAL
  4. VIMPAT [Suspect]
     Indication: EPILEPSY
     Dosage: 400 MG, DAILY
  5. METFORMIN [Concomitant]
     Indication: DIABETES MELLITUS
     Dosage: 1000 MG, 2X/DAY
  6. SIMVASTATIN [Concomitant]
     Indication: BLOOD CHOLESTEROL INCREASED
     Dosage: 20 MG, DAILY

REACTIONS (1)
  - Drug ineffective [Not Recovered/Not Resolved]
